FAERS Safety Report 9411890 (Version 2)
Quarter: 2013Q4

REPORT INFORMATION
  Report Type: Spontaneous
  Country: US (occurrence: US)
  Receive Date: 20130722
  Receipt Date: 20131101
  Transmission Date: 20140711
  Serious: Yes (Hospitalization, Other)
  Sender: FDA-Public Use
  Company Number: PHHY2011US69689

PATIENT
  Sex: Female

DRUGS (9)
  1. LIORESAL INTRATHECAL [Suspect]
     Indication: MUSCLE SPASTICITY
     Dosage: UNK UKN, UNK
     Route: 037
  2. PHENOBARBITAL [Suspect]
     Dosage: UNK UKN, UNK
     Route: 037
  3. COMPAZINE [Concomitant]
     Indication: NAUSEA
     Dosage: UNK UKN, UNK
  4. FENTANYL [Concomitant]
     Dosage: UNK UKN, UNK
  5. OXYCODONE [Concomitant]
     Dosage: UNK UKN, UNK
  6. VALIUM [Concomitant]
     Dosage: UNK UKN, UNK
  7. ENSURE [Concomitant]
     Dosage: 5 DF, QD
  8. ZOFRAN [Concomitant]
     Dosage: UNK UKN, UNK
  9. GAMMAGARD [Concomitant]
     Dosage: 64 G, EVERY 21 DAYS

REACTIONS (13)
  - Dehydration [Unknown]
  - Nausea [Not Recovered/Not Resolved]
  - Weight decreased [Unknown]
  - Malaise [Not Recovered/Not Resolved]
  - Depression [Unknown]
  - Food intolerance [Unknown]
  - Concomitant disease progression [Unknown]
  - Aphagia [Unknown]
  - Decreased appetite [Unknown]
  - Pain [Unknown]
  - Insomnia [Unknown]
  - Muscle spasms [Unknown]
  - No therapeutic response [Unknown]
